FAERS Safety Report 9052821 (Version 2)
Quarter: 2013Q1

REPORT INFORMATION
  Report Type: Spontaneous
  Country: US (occurrence: US)
  Receive Date: 20130207
  Receipt Date: 20130227
  Transmission Date: 20140127
  Serious: Yes (Hospitalization)
  Sender: FDA-Public Use
  Company Number: US-ROXANE LABORATORIES, INC.-2013-RO-00208RO

PATIENT
  Sex: Female

DRUGS (1)
  1. AMLODIPINE [Suspect]
     Indication: HYPERTENSION
     Route: 048

REACTIONS (3)
  - Cerebrovascular accident [Recovered/Resolved]
  - Blood pressure inadequately controlled [Not Recovered/Not Resolved]
  - Product quality issue [Not Recovered/Not Resolved]
